FAERS Safety Report 18722315 (Version 3)
Quarter: 2021Q2

REPORT INFORMATION
  Report Type: Other
  Country: US (occurrence: US)
  Receive Date: 20210111
  Receipt Date: 20210408
  Transmission Date: 20210717
  Serious: Yes (Death)
  Sender: FDA-Public Use
  Company Number: US-ROCHE-2746933

PATIENT
  Sex: Female

DRUGS (1)
  1. RITUXAN [Suspect]
     Active Substance: RITUXIMAB
     Indication: RHEUMATOID ARTHRITIS
     Dosage: WEEK 0 AND WEEKS 2 EVERY 5 MONTHS?DATE OF TREATEMENT: 08/MAY/018, 22/MAY/2018, 16/OCT/2018
     Route: 042
     Dates: start: 20180412

REACTIONS (1)
  - Death [Fatal]
